FAERS Safety Report 10621781 (Version 2)
Quarter: 2014Q4

REPORT INFORMATION
  Report Type: Spontaneous
  Country: US (occurrence: US)
  Receive Date: 20141203
  Receipt Date: 20141215
  Transmission Date: 20150529
  Serious: No
  Sender: FDA-Public Use
  Company Number: US-PFIZER INC-2014328470

PATIENT
  Age: 65 Year
  Sex: Male
  Weight: 91 kg

DRUGS (1)
  1. VIAGRA [Suspect]
     Active Substance: SILDENAFIL CITRATE
     Dosage: 100 MG, UNK

REACTIONS (3)
  - Drug ineffective [Not Recovered/Not Resolved]
  - Flushing [Unknown]
  - Product quality issue [Unknown]

NARRATIVE: CASE EVENT DATE: 20141123
